FAERS Safety Report 7091088-0 (Version None)
Quarter: 2010Q4

REPORT INFORMATION
  Report Type: 
  Country: None (occurrence: None)
  Receive Date: 20101109
  Receipt Date: 20101029
  Transmission Date: 20110411
  Serious: Yes (Hospitalization, Other)
  Sender: FDA-Public Use
  Company Number: PHHY2010BR74130

PATIENT
  Sex: Female
  Weight: 60 kg

DRUGS (5)
  1. EXELON [Suspect]
     Indication: MEMORY IMPAIRMENT
     Dosage: 9MG/5CM2 30 SIST (PATCH)
     Route: 062
  2. EXELON [Suspect]
     Dosage: 9 MG/5CM2
  3. PLAVIX [Concomitant]
     Dosage: 1 TABLET PER DAY
     Route: 048
     Dates: start: 20101020
  4. ATENOLOL [Concomitant]
     Dosage: 1 DF, QD
     Route: 048
  5. LOSARTAN [Concomitant]
     Dosage: 1 TABLET PER DAY
     Route: 048
     Dates: start: 20101020

REACTIONS (2)
  - CONFUSIONAL STATE [None]
  - INFARCTION [None]
